FAERS Safety Report 9117956 (Version 1)
Quarter: 2013Q1

REPORT INFORMATION
  Report Type: Spontaneous
  Country: US (occurrence: US)
  Receive Date: 20130225
  Receipt Date: 20130225
  Transmission Date: 20140127
  Serious: Yes (Hospitalization)
  Sender: FDA-Public Use
  Company Number: US-FRI-1000042642

PATIENT
  Age: 50 Year
  Sex: Female
  Weight: 83.64 kg

DRUGS (1)
  1. VIIBRYD [Suspect]
     Indication: DEPRESSION
     Dosage: 10 - 20 MG
     Route: 048
     Dates: start: 20121006, end: 20121015

REACTIONS (6)
  - Palpitations [Unknown]
  - Blood pressure increased [Unknown]
  - Musculoskeletal pain [Unknown]
  - Paraesthesia [Unknown]
  - Dizziness [Unknown]
  - Hyperhidrosis [Unknown]
